FAERS Safety Report 12733939 (Version 3)
Quarter: 2016Q4

REPORT INFORMATION
  Report Type: Spontaneous
  Country: US (occurrence: US)
  Receive Date: 20160912
  Receipt Date: 20161121
  Transmission Date: 20170207
  Serious: Yes (Hospitalization, Other)
  Sender: FDA-Public Use
  Company Number: US-JNJFOC-20160618886

PATIENT
  Age: 61 Year
  Sex: Female

DRUGS (4)
  1. XARELTO [Suspect]
     Active Substance: RIVAROXABAN
     Indication: THROMBOSIS PROPHYLAXIS
     Dosage: WITH BREAKFAST
     Route: 048
     Dates: start: 201308, end: 20150811
  2. XARELTO [Suspect]
     Active Substance: RIVAROXABAN
     Indication: CEREBROVASCULAR ACCIDENT PROPHYLAXIS
     Dosage: WITH BREAKFAST
     Route: 048
     Dates: start: 201308, end: 20150811
  3. XARELTO [Suspect]
     Active Substance: RIVAROXABAN
     Indication: ATRIAL FIBRILLATION
     Dosage: WITH BREAKFAST
     Route: 048
     Dates: start: 201308, end: 20150811
  4. XARELTO [Suspect]
     Active Substance: RIVAROXABAN
     Indication: ATRIAL FIBRILLATION
     Dosage: WITH BREAKFAST
     Route: 048
     Dates: start: 201308, end: 20150811

REACTIONS (6)
  - Internal haemorrhage [Unknown]
  - Off label use [Unknown]
  - Haematoma [Recovering/Resolving]
  - Incorrect dose administered [Unknown]
  - Acute kidney injury [Recovering/Resolving]
  - Shock haemorrhagic [Recovering/Resolving]

NARRATIVE: CASE EVENT DATE: 201308
